FAERS Safety Report 8156014-1 (Version None)
Quarter: 2012Q1

REPORT INFORMATION
  Report Type: 
  Country: None (occurrence: None)
  Receive Date: 20120103
  Receipt Date: 20111027
  Transmission Date: 20120608
  Serious: No
  Sender: FDA-Public Use
  Company Number: AE-2011-002743

PATIENT
  Age: 54 Year
  Sex: Male
  Weight: 63.5036 kg

DRUGS (3)
  1. PEGASYS [Concomitant]
  2. RIBAVIRIN [Concomitant]
  3. INCIVEK [Suspect]
     Dosage: (750 MG, Q7-9HRS), ORAL
     Route: 048
     Dates: start: 20111021

REACTIONS (1)
  - ECZEMA [None]
